FAERS Safety Report 25368014 (Version 1)
Quarter: 2025Q2

REPORT INFORMATION
  Report Type: Spontaneous
  Country: US (occurrence: US)
  Receive Date: 20250528
  Receipt Date: 20250528
  Transmission Date: 20250716
  Serious: No
  Sender: GLAXOSMITHKLINE
  Company Number: US-GSK-US2025066160

PATIENT
  Age: 78 Year
  Sex: Female
  Weight: 88.45 kg

DRUGS (2)
  1. TRELEGY ELLIPTA [Suspect]
     Active Substance: FLUTICASONE FUROATE\UMECLIDINIUM BROMIDE\VILANTEROL TRIFENATATE
     Indication: Asthma
     Dosage: 1 PUFF(S), QD 100-62.5-25MCG
     Dates: start: 20250401
  2. MUCINEX FAST MAX COLD, FLU AND SORE THROAT [Concomitant]
     Indication: Oropharyngeal pain
     Dates: start: 20250514

REACTIONS (2)
  - Oropharyngeal pain [Recovering/Resolving]
  - Ear pain [Recovering/Resolving]

NARRATIVE: CASE EVENT DATE: 20250513
